APPROVED DRUG PRODUCT: OXCARBAZEPINE
Active Ingredient: OXCARBAZEPINE
Strength: 300MG/5ML
Dosage Form/Route: SUSPENSION;ORAL
Application: A215726 | Product #001 | TE Code: AB
Applicant: RUBICON RESEARCH LTD
Approved: Aug 30, 2022 | RLD: No | RS: No | Type: RX